FAERS Safety Report 11529819 (Version 4)
Quarter: 2015Q4

REPORT INFORMATION
  Report Type: Spontaneous
  Country: CA (occurrence: CA)
  Receive Date: 20150921
  Receipt Date: 20151109
  Transmission Date: 20160304
  Serious: Yes (Hospitalization, Other)
  Sender: FDA-Public Use
  Company Number: CA-GLAXOSMITHKLINE INC.-CA2015GSK133166

PATIENT
  Age: 62 Year
  Sex: Male

DRUGS (1)
  1. BENLYSTA [Suspect]
     Active Substance: BELIMUMAB
     Indication: SYSTEMIC LUPUS ERYTHEMATOSUS
     Dosage: 800 MG, UNK
     Dates: start: 20141121, end: 20151005

REACTIONS (6)
  - Malaise [Recovered/Resolved]
  - Palliative care [Unknown]
  - Dyspnoea [Recovered/Resolved]
  - Lung disorder [Unknown]
  - Idiopathic pulmonary fibrosis [Unknown]
  - Secretion discharge [Recovered/Resolved]

NARRATIVE: CASE EVENT DATE: 201510
